FAERS Safety Report 4700154-3 (Version None)
Quarter: 2005Q2

REPORT INFORMATION
  Report Type: 
  Country: None (occurrence: None)
  Receive Date: 20050627
  Receipt Date: 20050615
  Transmission Date: 20051028
  Serious: Yes (Death)
  Sender: FDA-Public Use
  Company Number: JP-JNJFOC-20050600340

PATIENT
  Sex: Male
  Weight: 62 kg

DRUGS (19)
  1. REMICADE [Suspect]
     Dosage: TREATMENT INEFFECTIVE ON 27-NOV-2002
     Route: 042
  2. REMICADE [Suspect]
     Dosage: TREATMENT SOMEWHAT EFFECTIVE ON 23-OCT-2002
     Route: 042
  3. REMICADE [Suspect]
     Indication: CROHN'S DISEASE
     Dosage: TREATMENT INEFFECTIVE ON 02-OCT-2002
     Route: 042
  4. PREDNISOLONE [Concomitant]
     Indication: CROHN'S DISEASE
     Route: 049
  5. PENTASA [Concomitant]
     Indication: CROHN'S DISEASE
     Dosage: 250
     Route: 049
  6. SELBEX [Concomitant]
     Route: 049
  7. MUCOSTA [Concomitant]
     Dosage: 100
     Route: 049
  8. GASTER [Concomitant]
     Route: 049
  9. OMEGACIN [Concomitant]
     Route: 041
  10. CHENAM [Concomitant]
     Dosage: DRIP KIT
     Route: 041
  11. SULPERAZON [Concomitant]
     Route: 042
  12. SULPERAZON [Concomitant]
     Dosage: KIT
     Route: 042
  13. DIFLUCAN [Concomitant]
     Route: 042
  14. VANCOMYCIN [Concomitant]
     Dosage: 0.5
     Route: 042
  15. OMEPRAL A [Concomitant]
     Dosage: 20
     Route: 042
  16. MIRACLID [Concomitant]
     Dosage: 50,000
     Route: 042
  17. NUTRITION PARENTERAL [Concomitant]
  18. NUTRITION PARENTERAL [Concomitant]
  19. NUTRITION PARENTERAL [Concomitant]

REACTIONS (10)
  - ABSCESS [None]
  - CELLULITIS [None]
  - DRUG INEFFECTIVE [None]
  - GASTROINTESTINAL HAEMORRHAGE [None]
  - MULTI-ORGAN FAILURE [None]
  - PLEURAL EFFUSION [None]
  - PNEUMONIA [None]
  - RENAL FAILURE [None]
  - RESPIRATORY FAILURE [None]
  - STAPHYLOCOCCAL INFECTION [None]
